FAERS Safety Report 5127506-4 (Version None)
Quarter: 2006Q4

REPORT INFORMATION
  Report Type: 
  Country: None (occurrence: None)
  Receive Date: 20061010
  Receipt Date: 20060830
  Transmission Date: 20070319
  Serious: Yes (Other)
  Sender: FDA-Public Use
  Company Number: 2006116510

PATIENT
  Age: 70 Year
  Sex: Male

DRUGS (5)
  1. MIGLITOL                        TABLET (MIGLITOL) [Suspect]
     Indication: DIABETES MELLITUS
     Dosage: 150 MG, ORAL
     Route: 048
     Dates: start: 20060125, end: 20060621
  2. NORVASC [Concomitant]
  3. LOSARTAN POTASSIUM [Concomitant]
  4. GLYBURIDE [Concomitant]
  5. LIPOVAS BANYU (SIMVASTATIN) [Concomitant]

REACTIONS (2)
  - BLOOD CREATINE PHOSPHOKINASE INCREASED [None]
  - HEPATIC FUNCTION ABNORMAL [None]
